FAERS Safety Report 6003659-0 (Version None)
Quarter: 2008Q4

REPORT INFORMATION
  Report Type: 
  Country: None (occurrence: None)
  Receive Date: 20081216
  Receipt Date: 20081203
  Transmission Date: 20090506
  Serious: Yes (Hospitalization)
  Sender: FDA-Public Use
  Company Number: US-ELI_LILLY_AND_COMPANY-US200812001308

PATIENT
  Sex: Female

DRUGS (7)
  1. FORTEO [Suspect]
     Indication: OSTEOPOROSIS
  2. NORVASC [Concomitant]
     Indication: HYPERTENSION
  3. COUMADIN [Concomitant]
  4. LOPRESSOR [Concomitant]
     Indication: HYPERTENSION
  5. LASIX [Concomitant]
  6. CEFALEXIN [Concomitant]
     Indication: CARDIAC DISORDER
  7. TYLENOL                                 /SCH/ [Concomitant]

REACTIONS (3)
  - BODY HEIGHT DECREASED [None]
  - CARDIAC FAILURE CONGESTIVE [None]
  - DRUG INEFFECTIVE [None]
